FAERS Safety Report 21305480 (Version 1)
Quarter: 2022Q3

REPORT INFORMATION
  Report Type: Spontaneous
  Country: FR (occurrence: FR)
  Receive Date: 20220908
  Receipt Date: 20220908
  Transmission Date: 20221027
  Serious: Yes (Hospitalization, Other)
  Sender: FDA-Public Use
  Company Number: None

PATIENT
  Age: 16 Year
  Sex: Female
  Weight: 60 kg

DRUGS (3)
  1. FLUOXETINE HYDROCHLORIDE [Suspect]
     Active Substance: FLUOXETINE HYDROCHLORIDE
     Indication: Depression
     Dosage: 20 MILLIGRAM DAILY;  20 MG/D , CHLORHYDRATE DE FLUOXETINE ,  DURATION : 7 MONTH
     Dates: start: 202106, end: 20220107
  2. COMIRNATY [Suspect]
     Active Substance: TOZINAMERAN
     Indication: COVID-19 immunisation
     Dosage: D2 , UNIT DOSE : 0.3 ML , DURATION : 1 DAY
     Dates: start: 20211215, end: 20211215
  3. COMIRNATY [Suspect]
     Active Substance: TOZINAMERAN
     Dosage: D1 , UNIT DOSE : 0.3 ML , DURATION : 1 DAY
     Dates: start: 20211124, end: 20211124

REACTIONS (1)
  - Conduction disorder [Recovered/Resolved]

NARRATIVE: CASE EVENT DATE: 20220107
